FAERS Safety Report 24592745 (Version 2)
Quarter: 2025Q1

REPORT INFORMATION
  Report Type: Spontaneous
  Country: TR (occurrence: TR)
  Receive Date: 20241108
  Receipt Date: 20250109
  Transmission Date: 20250409
  Serious: Yes (Hospitalization, Other)
  Sender: MYLAN
  Company Number: TR-MYLANLABS-2024M1099316

PATIENT
  Age: 35 Year
  Sex: Female
  Weight: 60 kg

DRUGS (1)
  1. SERTRALINE [Suspect]
     Active Substance: SERTRALINE HYDROCHLORIDE
     Indication: Product used for unknown indication
     Route: 048

REACTIONS (8)
  - Hyperthermia [Unknown]
  - Delirium [Unknown]
  - Toxicity to various agents [Unknown]
  - Intentional overdose [Unknown]
  - Suicide attempt [Unknown]
  - Tachycardia [Unknown]
  - Tremor [Unknown]
  - Trismus [Unknown]

NARRATIVE: CASE EVENT DATE: 20080801
